FAERS Safety Report 13830604 (Version 1)
Quarter: 2017Q3

REPORT INFORMATION
  Report Type: Spontaneous
  Country: US (occurrence: US)
  Receive Date: 20170803
  Receipt Date: 20170803
  Transmission Date: 20171127
  Serious: No
  Sender: FDA-Public Use
  Company Number: US-SA-2017SA094454

PATIENT
  Age: 63 Year
  Sex: Female

DRUGS (2)
  1. PRALUENT [Suspect]
     Active Substance: ALIROCUMAB
     Indication: HYPERCHOLESTEROLAEMIA
     Route: 058
     Dates: end: 201705
  2. ALIROCUMAB PREFILLED PEN [Concomitant]
     Active Substance: ALIROCUMAB
     Indication: HYPERCHOLESTEROLAEMIA
     Dates: end: 201705

REACTIONS (18)
  - Fatigue [Recovering/Resolving]
  - Depression [Recovering/Resolving]
  - Chromaturia [Recovering/Resolving]
  - Musculoskeletal pain [Recovering/Resolving]
  - Mood altered [Recovering/Resolving]
  - Decreased interest [Recovering/Resolving]
  - Blood pressure increased [Recovering/Resolving]
  - Dry eye [Recovering/Resolving]
  - Asthenia [Recovering/Resolving]
  - Muscular weakness [Recovering/Resolving]
  - Hypotonia [Recovering/Resolving]
  - Urine odour abnormal [Recovering/Resolving]
  - Anxiety [Recovering/Resolving]
  - Fluid retention [Recovering/Resolving]
  - Agitation [Unknown]
  - Nervousness [Recovering/Resolving]
  - Migraine [Recovering/Resolving]
  - Muscle twitching [Recovering/Resolving]
